FAERS Safety Report 9916395 (Version 1)
Quarter: 2014Q1

REPORT INFORMATION
  Report Type: Spontaneous
  Country: US (occurrence: None)
  Receive Date: 20140220
  Receipt Date: 20140220
  Transmission Date: 20141002
  Serious: Yes (Disabling)
  Sender: FDA-Public Use
  Company Number: None

PATIENT
  Age: 80 Year
  Sex: Female
  Weight: 72.58 kg

DRUGS (1)
  1. CEFUROXIME AXETIL [Suspect]
     Indication: LARYNGITIS
     Route: 048
     Dates: start: 20140128, end: 20140202

REACTIONS (6)
  - Deafness [None]
  - Arthralgia [None]
  - Fatigue [None]
  - Diarrhoea [None]
  - Musculoskeletal pain [None]
  - Arthralgia [None]
